FAERS Safety Report 22189976 (Version 1)
Quarter: 2023Q2

REPORT INFORMATION
  Report Type: Spontaneous
  Country: IR (occurrence: IR)
  Receive Date: 20230410
  Receipt Date: 20230410
  Transmission Date: 20230721
  Serious: Yes (Death)
  Sender: FDA-Public Use
  Company Number: IR-BAYER-2021A249078

PATIENT
  Age: 52 Year
  Sex: Female

DRUGS (1)
  1. RIVAROXABAN [Suspect]
     Active Substance: RIVAROXABAN
     Indication: COVID-19
     Route: 048

REACTIONS (4)
  - Pulmonary embolism [Fatal]
  - Deep vein thrombosis [Fatal]
  - Drug ineffective for unapproved indication [Unknown]
  - Off label use [Unknown]
